FAERS Safety Report 9796698 (Version 1)
Quarter: 2014Q1

REPORT INFORMATION
  Report Type: Spontaneous
  Country: US (occurrence: US)
  Receive Date: 20140103
  Receipt Date: 20140103
  Transmission Date: 20141002
  Serious: Yes (Death, Hospitalization, Other)
  Sender: FDA-Public Use
  Company Number: US-UCBSA-107570

PATIENT
  Age: 63 Year
  Sex: Male

DRUGS (4)
  1. ALPRAZOLAM [Suspect]
     Dosage: INGESTION
  2. ETHANOL [Suspect]
     Dosage: ROUTE: INGESTION
  3. AMPHETAMINE [Suspect]
     Dosage: ROUTE: INGESTION
  4. LISINOPRIL [Suspect]
     Dosage: ROUTE: INGESTION

REACTIONS (1)
  - Completed suicide [Fatal]
